FAERS Safety Report 21733749 (Version 2)
Quarter: 2022Q4

REPORT INFORMATION
  Report Type: Spontaneous
  Country: US (occurrence: US)
  Receive Date: 20221215
  Receipt Date: 20221219
  Transmission Date: 20230113
  Serious: Yes (Hospitalization, Other)
  Sender: FDA-Public Use
  Company Number: US-MLMSERVICE-20221129-3948492-1

PATIENT
  Age: 25 Year
  Sex: Female

DRUGS (7)
  1. DIAZEPAM [Suspect]
     Active Substance: DIAZEPAM
     Indication: Brain injury
     Dosage: 5 MG, 4X/DAY
  2. VALPROIC ACID [Suspect]
     Active Substance: VALPROIC ACID
     Indication: Brain injury
     Dosage: 750 MG, 2X/DAY
  3. BACLOFEN [Suspect]
     Active Substance: BACLOFEN
     Indication: Brain injury
     Dosage: 10 MG, 3X/DAY
  4. OLANZAPINE [Suspect]
     Active Substance: OLANZAPINE
     Indication: Brain injury
     Dosage: 10 MG, 1X/DAY(QAM)
  5. QUETIAPINE [Suspect]
     Active Substance: QUETIAPINE
     Indication: Brain injury
     Dosage: 50 MG, 1X/DAY(QAM)
  6. QUETIAPINE [Suspect]
     Active Substance: QUETIAPINE
     Dosage: 100 MG, 1X/DAY(QHS)
  7. METHADONE [Suspect]
     Active Substance: METHADONE HYDROCHLORIDE
     Indication: Brain injury
     Dosage: 5 MG, 3X/DAY

REACTIONS (2)
  - Depressed level of consciousness [Recovering/Resolving]
  - Off label use [Recovering/Resolving]
